FAERS Safety Report 20911577 (Version 1)
Quarter: 2022Q2

REPORT INFORMATION
  Report Type: Spontaneous
  Country: CN (occurrence: CN)
  Receive Date: 20220603
  Receipt Date: 20220603
  Transmission Date: 20220721
  Serious: Yes (Other)
  Sender: FDA-Public Use
  Company Number: CN-Merck Healthcare KGaA-9325740

PATIENT
  Age: 60 Year
  Sex: Male
  Weight: 65 kg

DRUGS (10)
  1. ERBITUX [Suspect]
     Active Substance: CETUXIMAB
     Indication: Colon cancer
     Dosage: 0.7 G, UNKNOWN
     Route: 041
     Dates: start: 20220426, end: 20220426
  2. OXALIPLATIN [Suspect]
     Active Substance: OXALIPLATIN
     Indication: Colon cancer
     Dosage: 150 MG, UNKNOWN
     Route: 041
     Dates: start: 20220426, end: 20220426
  3. FLUOROURACIL [Suspect]
     Active Substance: FLUOROURACIL
     Indication: Colon cancer
     Dosage: 0.6 G, UNKNOWN
     Route: 042
     Dates: start: 20220426, end: 20220426
  4. FLUOROURACIL [Suspect]
     Active Substance: FLUOROURACIL
     Dosage: 2 G, UNKNOWN
     Route: 042
     Dates: start: 20220426, end: 20220427
  5. FLUOROURACIL [Suspect]
     Active Substance: FLUOROURACIL
     Dosage: 1.75 G, UNKNOWN
     Route: 042
     Dates: start: 20220427, end: 20220428
  6. DEXTROSE [Concomitant]
     Active Substance: DEXTROSE
     Indication: Vehicle solution use
     Dosage: 250 ML, DAILY
     Route: 041
     Dates: start: 20220426, end: 20220426
  7. SODIUM CHLORIDE [Concomitant]
     Active Substance: SODIUM CHLORIDE
     Indication: Vehicle solution use
     Dosage: 50 ML, DAILY
     Route: 041
     Dates: start: 20220426, end: 20220426
  8. SODIUM CHLORIDE [Concomitant]
     Active Substance: SODIUM CHLORIDE
     Dosage: 26 ML, DAILY
     Route: 042
     Dates: start: 20220426, end: 20220426
  9. SODIUM CHLORIDE [Concomitant]
     Active Substance: SODIUM CHLORIDE
     Dosage: 70 ML, QOD
     Route: 042
     Dates: start: 20220426, end: 20220427
  10. SODIUM CHLORIDE [Concomitant]
     Active Substance: SODIUM CHLORIDE
     Dosage: 80 ML, QOD
     Route: 042
     Dates: start: 20220427, end: 20220428

REACTIONS (2)
  - Platelet count decreased [Recovered/Resolved]
  - White blood cell count decreased [Recovered/Resolved]

NARRATIVE: CASE EVENT DATE: 20220509
